FAERS Safety Report 19588497 (Version 2)
Quarter: 2021Q3

REPORT INFORMATION
  Report Type: Spontaneous
  Country: PT (occurrence: PT)
  Receive Date: 20210721
  Receipt Date: 20210802
  Transmission Date: 20211014
  Serious: Yes (Hospitalization, Other)
  Sender: FDA-Public Use
  Company Number: PT-MYLANLABS-2021M1044841

PATIENT
  Age: 38 Year
  Sex: Female

DRUGS (4)
  1. PYRIDOSTIGMINE [Suspect]
     Active Substance: PYRIDOSTIGMINE
     Indication: CONGENITAL MYASTHENIC SYNDROME
     Dosage: 360 MILLIGRAM, QD
     Route: 065
  2. PREDNISOLONE. [Suspect]
     Active Substance: PREDNISOLONE
     Indication: CONGENITAL MYASTHENIC SYNDROME
     Dosage: UNK
     Route: 065
  3. SALBUTAMOL [Suspect]
     Active Substance: ALBUTEROL
     Indication: CONGENITAL MYASTHENIC SYNDROME
     Dosage: 12 MILLIGRAM, QD
     Route: 065
  4. IMMUNOGLOBULIN                     /07494701/ [Suspect]
     Active Substance: IMMUNE GLOBULIN NOS
     Indication: CONGENITAL MYASTHENIC SYNDROME
     Dosage: 2 GRAM PER KILOGRAM (4 WEEKS)
     Route: 042

REACTIONS (6)
  - Congenital myasthenic syndrome [Recovered/Resolved]
  - Drug ineffective [Unknown]
  - Maternal exposure during pregnancy [Recovered/Resolved]
  - Maternal exposure during breast feeding [Unknown]
  - Condition aggravated [Recovered/Resolved]
  - Off label use [Unknown]
